FAERS Safety Report 5248396-5 (Version None)
Quarter: 2007Q1

REPORT INFORMATION
  Report Type: 
  Country: None (occurrence: None)
  Receive Date: 20070222
  Receipt Date: 20070216
  Transmission Date: 20070707
  Serious: Yes (Other)
  Sender: FDA-Public Use
  Company Number: S06-USA-04656-01

PATIENT
  Age: 76 Year
  Sex: Female
  Weight: 68.0396 kg

DRUGS (17)
  1. NAMENDA [Suspect]
     Indication: DEMENTIA
     Dosage: 5 MG QD PO
     Route: 048
     Dates: start: 20060101, end: 20060101
  2. NAMENDA [Suspect]
     Indication: DEMENTIA
     Dosage: 5 MG BID PO
     Route: 048
     Dates: start: 20060101, end: 20060101
  3. NAMENDA [Suspect]
     Indication: DEMENTIA
     Dosage: 15 MG QD PO
     Route: 048
     Dates: start: 20060101, end: 20060101
  4. NAMENDA [Suspect]
     Indication: DEMENTIA
     Dosage: 10 MG BID PO
     Route: 048
     Dates: start: 20060101
  5. ARICEPT [Suspect]
     Indication: DEMENTIA
     Dosage: 5 MG QD PO
     Route: 048
     Dates: start: 20060101, end: 20060101
  6. ARICEPT [Suspect]
     Indication: DEMENTIA
     Dosage: 10 MG QD PO
     Route: 048
     Dates: start: 20060101, end: 20061001
  7. DIOVAN [Concomitant]
  8. INSULIN [Concomitant]
  9. TRAZODONE HCL [Concomitant]
  10. LEVOTHYROXINE SODIUM [Concomitant]
  11. BUSPAR [Concomitant]
  12. PANIC MEDICATION (NOS) [Concomitant]
  13. VITAMINS NOS [Concomitant]
  14. TEMAZEPAM [Concomitant]
  15. TRAVATAN [Concomitant]
  16. VITAMIN B-12 [Concomitant]
  17. LEXAPRO [Concomitant]

REACTIONS (14)
  - AGORAPHOBIA [None]
  - CONDITION AGGRAVATED [None]
  - CONFUSIONAL STATE [None]
  - CONSTIPATION [None]
  - DEPRESSION [None]
  - DRUG INEFFECTIVE [None]
  - DYSGEUSIA [None]
  - ELECTROCARDIOGRAM ABNORMAL [None]
  - MICTURITION URGENCY [None]
  - MITRAL VALVE PROLAPSE [None]
  - SOMNOLENCE [None]
  - URINARY INCONTINENCE [None]
  - URINARY TRACT INFECTION [None]
  - WEIGHT DECREASED [None]
